FAERS Safety Report 4456917-5 (Version None)
Quarter: 2004Q3

REPORT INFORMATION
  Report Type: 
  Country: None (occurrence: None)
  Receive Date: 20040923
  Receipt Date: 20040913
  Transmission Date: 20050211
  Serious: Yes (Hospitalization)
  Sender: FDA-Public Use
  Company Number: US-ROCHE-380555

PATIENT
  Age: 25 Year
  Sex: Female
  Weight: 51.7 kg

DRUGS (5)
  1. PEGASYS [Suspect]
     Indication: HEPATITIS C
     Route: 058
     Dates: start: 20040215, end: 20040425
  2. PEGASYS [Suspect]
     Route: 058
     Dates: start: 20040826
  3. COPEGUS [Suspect]
     Indication: HEPATITIS C
     Dosage: 400 MG A.M., 600 MG P.M.
     Route: 048
     Dates: start: 20040215, end: 20040425
  4. COPEGUS [Suspect]
     Dosage: 400 MG A.M. AND 600 MG P.M.
     Route: 048
     Dates: start: 20040826
  5. ORTHO CYCLEN-28 [Concomitant]
     Indication: CONTRACEPTION
     Dosage: REPORTED AS ORTHOCYCLINE.
     Route: 048

REACTIONS (2)
  - GALLBLADDER NON-FUNCTIONING [None]
  - MIGRAINE [None]
